FAERS Safety Report 25029535 (Version 1)
Quarter: 2025Q1

REPORT INFORMATION
  Report Type: Spontaneous
  Country: HU (occurrence: HU)
  Receive Date: 20250303
  Receipt Date: 20250303
  Transmission Date: 20250409
  Serious: Yes (Hospitalization)
  Sender: EMD SERONO INC
  Company Number: None

PATIENT
  Age: 31 Year
  Sex: Male
  Weight: 90 kg

DRUGS (4)
  1. MAVENCLAD [Suspect]
     Active Substance: CLADRIBINE
     Indication: Multiple sclerosis
     Dates: start: 20240111, end: 20240115
  2. MAVENCLAD [Suspect]
     Active Substance: CLADRIBINE
     Dates: start: 20240210, end: 20240214
  3. RIFAZID [Concomitant]
     Indication: Tuberculosis
     Dates: start: 202312, end: 202402
  4. RIFAZID [Concomitant]

REACTIONS (1)
  - Ischaemic stroke [Recovering/Resolving]

NARRATIVE: CASE EVENT DATE: 20241229
